FAERS Safety Report 25710526 (Version 3)
Quarter: 2025Q3

REPORT INFORMATION
  Report Type: Spontaneous
  Country: US (occurrence: US)
  Receive Date: 20250821
  Receipt Date: 20250902
  Transmission Date: 20251020
  Serious: Yes (Hospitalization)
  Sender: AMGEN
  Company Number: US-AMGEN-USASP2025162974

PATIENT
  Age: 70 Year
  Sex: Male

DRUGS (2)
  1. IMDELLTRA [Suspect]
     Active Substance: TARLATAMAB-DLLE
     Indication: Small cell lung cancer
     Route: 065
     Dates: start: 20250804
  2. PREDNISONE [Suspect]
     Active Substance: PREDNISONE
     Indication: Small cell lung cancer metastatic
     Route: 065
     Dates: start: 202505

REACTIONS (4)
  - Immune effector cell-associated neurotoxicity syndrome [Unknown]
  - Pulmonary embolism [Recovered/Resolved]
  - Off label use [Unknown]
  - Chronic obstructive pulmonary disease [Unknown]

NARRATIVE: CASE EVENT DATE: 20250501
